FAERS Safety Report 17057212 (Version 1)
Quarter: 2019Q4

REPORT INFORMATION
  Report Type: Spontaneous
  Country: GB (occurrence: GB)
  Receive Date: 20191121
  Receipt Date: 20191121
  Transmission Date: 20200122
  Serious: Yes (Other)
  Sender: FDA-Public Use
  Company Number: GB-TEVA-2019-GB-1140715

PATIENT
  Age: 55 Year
  Sex: Male

DRUGS (1)
  1. NEOTIGASON [Suspect]
     Active Substance: ACITRETIN
     Dosage: 40 MILLIGRAM DAILY; FOR THREE YEARS
     Route: 065

REACTIONS (1)
  - Calcinosis [Unknown]
